FAERS Safety Report 7198142-3 (Version None)
Quarter: 2010Q4

REPORT INFORMATION
  Report Type: 
  Country: None (occurrence: None)
  Receive Date: 20101223
  Receipt Date: 20101223
  Transmission Date: 20110411
  Serious: Yes (Life-Threatening)
  Sender: FDA-Public Use
  Company Number: None

PATIENT
  Age: 61 Year
  Sex: Male
  Weight: 93.5 kg

DRUGS (1)
  1. CLOZAPINE [Suspect]
     Indication: SCHIZOPHRENIA, PARANOID TYPE
     Dosage: 100 MG EVERY DAY PO
     Route: 048
     Dates: start: 19970802, end: 20101007

REACTIONS (3)
  - CONSTIPATION [None]
  - ILEUS [None]
  - INTESTINAL OBSTRUCTION [None]
